FAERS Safety Report 19744802 (Version 1)
Quarter: 2021Q3

REPORT INFORMATION
  Report Type: Spontaneous
  Country: US (occurrence: US)
  Receive Date: 20210825
  Receipt Date: 20210825
  Transmission Date: 20211014
  Serious: Yes (Other)
  Sender: FDA-Public Use
  Company Number: US-MYLANLABS-2021M1055141

PATIENT
  Age: 37 Year
  Sex: Female

DRUGS (1)
  1. HYDROCORTISONE. [Suspect]
     Active Substance: HYDROCORTISONE
     Indication: HYPOPITUITARISM
     Dosage: SELF?ADMINISTERED INTO THE THIGH UNDER THE ADVISEMENT OF AN ENDOCRINOLOGIST
     Route: 065

REACTIONS (2)
  - Mycobacterium chelonae infection [Recovering/Resolving]
  - Panniculitis [Recovering/Resolving]
